FAERS Safety Report 9369001 (Version 1)
Quarter: 2013Q2

REPORT INFORMATION
  Report Type: Spontaneous
  Country: GB (occurrence: None)
  Receive Date: 20130621
  Receipt Date: 20130621
  Transmission Date: 20140414
  Serious: Yes (Other)
  Sender: FDA-Public Use
  Company Number: AUR-APL-2013-04968

PATIENT
  Sex: Female

DRUGS (6)
  1. AMLODIPINE (AMLODIPINE) [Suspect]
     Indication: HYPERTENSION
  2. BENDROFLUMETHIAZIDE (BENDROFLUMETHIAZIDE) [Suspect]
     Indication: HYPERTENSION
  3. AZITHROMYCIN (AZITHROMYCIN) [Suspect]
     Indication: PRODUCT USED FOR UNKNOWN INDICATION
     Dosage: 1 DOSAGE FORMS, 3 IN 1 WK
  4. CARBOCISTEINE [Suspect]
     Indication: PRODUCT USED FOR UNKNOWN INDICATION
     Dosage: (2 DOSAGE FORMS, 3 IN 1 D),
  5. DOXYCYCLINE (DOXYCYCLINE) [Suspect]
     Indication: PRODUCT USED FOR UNKNOWN INDICATION
     Dosage: 100 MG 1 IN 1 D
  6. SALBUTAMOL (SALBUTAMOL) [Suspect]
     Indication: PRODUCT USED FOR UNKNOWN INDICATION
     Dosage: 2 DOSAGE FORMS, 4 IN 1 D

REACTIONS (3)
  - Bronchiectasis [None]
  - Drug interaction [None]
  - Condition aggravated [None]
